FAERS Safety Report 6932212-7 (Version None)
Quarter: 2010Q3

REPORT INFORMATION
  Report Type: 
  Country: None (occurrence: None)
  Receive Date: 20100819
  Receipt Date: 20100804
  Transmission Date: 20110219
  Serious: Yes (Other)
  Sender: FDA-Public Use
  Company Number: PHHY2010US51527

PATIENT
  Sex: Female

DRUGS (5)
  1. RECLAST [Suspect]
  2. ASPIRIN [Suspect]
  3. VITAMIN D [Concomitant]
  4. CALCIUM [Concomitant]
  5. ZOMIG [Concomitant]

REACTIONS (9)
  - BACK PAIN [None]
  - BURNING SENSATION [None]
  - HERPES ZOSTER [None]
  - HYPERSENSITIVITY [None]
  - HYPOAESTHESIA [None]
  - NAUSEA [None]
  - OEDEMA MOUTH [None]
  - SWELLING FACE [None]
  - URTICARIA [None]
